FAERS Safety Report 4564341-X (Version None)
Quarter: 2005Q1

REPORT INFORMATION
  Report Type: 
  Country: None (occurrence: None)
  Receive Date: 20050128
  Receipt Date: 20050119
  Transmission Date: 20050727
  Serious: Yes (Other)
  Sender: FDA-Public Use
  Company Number: US-GLAXOSMITHKLINE-A0541340A

PATIENT
  Sex: Male

DRUGS (2)
  1. WELLBUTRIN [Suspect]
     Indication: AUTISM
     Dosage: 150MG PER DAY
     Route: 048
  2. ADDERALL 20 [Concomitant]

REACTIONS (7)
  - ABNORMAL BEHAVIOUR [None]
  - CRYING [None]
  - DEPRESSION [None]
  - HALLUCINATION [None]
  - PHARYNGOLARYNGEAL PAIN [None]
  - SLEEP DISORDER [None]
  - URTICARIA [None]
